FAERS Safety Report 18329507 (Version 2)
Quarter: 2020Q4

REPORT INFORMATION
  Report Type: Spontaneous
  Country: US (occurrence: US)
  Receive Date: 20200930
  Receipt Date: 20201023
  Transmission Date: 20210113
  Serious: No
  Sender: FDA-Public Use
  Company Number: US-PFIZER INC-2020100796

PATIENT
  Age: 62 Year
  Sex: Male

DRUGS (1)
  1. CAVERJECT [Suspect]
     Active Substance: ALPROSTADIL
     Indication: SEXUAL ACTIVITY INCREASED
     Dosage: UNK

REACTIONS (2)
  - Product label confusion [Unknown]
  - Drug ineffective [Unknown]
